FAERS Safety Report 9277407 (Version 1)
Quarter: 2013Q2

REPORT INFORMATION
  Report Type: Spontaneous
  Country: US (occurrence: US)
  Receive Date: 20130508
  Receipt Date: 20130508
  Transmission Date: 20140414
  Serious: Yes (Hospitalization)
  Sender: FDA-Public Use
  Company Number: US-BAYER-2013-055272

PATIENT
  Age: 28 Year
  Sex: Female
  Weight: 66 kg

DRUGS (7)
  1. OCELLA [Suspect]
  2. YAZ [Suspect]
  3. ERYTHROMYCIN [Concomitant]
  4. VANTIN [Concomitant]
  5. CEFTRIAXONE [Concomitant]
  6. LORCET [Concomitant]
  7. IBUPROFEN [Concomitant]

REACTIONS (1)
  - Pulmonary embolism [None]
